FAERS Safety Report 15105472 (Version 3)
Quarter: 2018Q3

REPORT INFORMATION
  Report Type: Spontaneous
  Country: US (occurrence: US)
  Receive Date: 20180704
  Receipt Date: 20180727
  Transmission Date: 20181010
  Serious: Yes (Other)
  Sender: FDA-Public Use
  Company Number: US-ASTRAZENECA-2018SE74483

PATIENT
  Age: 14822 Day
  Sex: Male
  Weight: 121.6 kg

DRUGS (3)
  1. FASENRA [Suspect]
     Active Substance: BENRALIZUMAB
     Indication: ASTHMA
     Dosage: EVERY 4 WEEKS FOR THE FIRST 3 DOSES
     Route: 042
     Dates: start: 20180503
  2. FASENRA [Suspect]
     Active Substance: BENRALIZUMAB
     Indication: ASTHMA
     Dosage: ONCE EVERY 8 WEEKS
     Route: 042
  3. PROAIR HFA [Concomitant]
     Active Substance: ALBUTEROL SULFATE
     Indication: ASTHMA
     Dosage: AS REQUIRED
     Route: 055

REACTIONS (9)
  - Arthralgia [Recovered/Resolved]
  - Asthenia [Not Recovered/Not Resolved]
  - Peripheral swelling [Recovered/Resolved]
  - Adrenal insufficiency [Unknown]
  - Swelling [Not Recovered/Not Resolved]
  - Fatigue [Recovered/Resolved]
  - Rash [Recovered/Resolved]
  - Muscle spasms [Recovered/Resolved]
  - Lymphadenopathy [Unknown]

NARRATIVE: CASE EVENT DATE: 20180526
